FAERS Safety Report 14836853 (Version 3)
Quarter: 2019Q2

REPORT INFORMATION
  Report Type: Spontaneous
  Country: RS (occurrence: RS)
  Receive Date: 20180502
  Receipt Date: 20190514
  Transmission Date: 20190711
  Serious: Yes (Death, Hospitalization)
  Sender: FDA-Public Use
  Company Number: RS-SA-2018SA120900

PATIENT
  Age: 67 Year
  Sex: Male

DRUGS (1)
  1. BCG FOR IMMUNOTHERAPY [Suspect]
     Active Substance: BACILLUS CALMETTE-GUERIN ANTIGEN, UNSPECIFIED SUBSTRAIN
     Indication: BLADDER CANCER
     Dosage: UNK UNK,UNK
     Route: 043
     Dates: start: 201011, end: 201011

REACTIONS (5)
  - Inflammation [Recovered/Resolved]
  - Rash erythematous [Recovered/Resolved]
  - Cutaneous tuberculosis [Recovered/Resolved]
  - Transformation to acute myeloid leukaemia [Fatal]
  - Myelodysplastic syndrome transformation [Fatal]

NARRATIVE: CASE EVENT DATE: 201412
